FAERS Safety Report 10069702 (Version 1)
Quarter: 2014Q2

REPORT INFORMATION
  Report Type: Spontaneous
  Country: US (occurrence: None)
  Receive Date: 20140409
  Receipt Date: 20140409
  Transmission Date: 20141212
  Serious: Yes (Life-Threatening, Other)
  Sender: FDA-Public Use
  Company Number: None

PATIENT
  Age: 49 Year
  Sex: Female
  Weight: 71.67 kg

DRUGS (1)
  1. DULOXETINE HCL [Suspect]
     Indication: DEPRESSION
     Dosage: 1 PILLS/60 MG EACH, ONCE DAILY, TAKEN BY MOUTH
     Route: 048
     Dates: start: 20140324, end: 20140403

REACTIONS (8)
  - Headache [None]
  - Nausea [None]
  - Diarrhoea [None]
  - Crying [None]
  - Irritability [None]
  - Feeling abnormal [None]
  - Suicidal ideation [None]
  - Product substitution issue [None]
